FAERS Safety Report 5888481-8 (Version None)
Quarter: 2008Q3

REPORT INFORMATION
  Report Type: 
  Country: None (occurrence: None)
  Receive Date: 20080917
  Receipt Date: 20080917
  Transmission Date: 20090109
  Serious: Yes (Other)
  Sender: FDA-Public Use
  Company Number: None

PATIENT
  Age: 12 Year
  Sex: Female
  Weight: 43.9989 kg

DRUGS (2)
  1. RISPERDAL [Suspect]
     Indication: AGGRESSION
     Dosage: 1.5 MG TWICE DAILY PO
     Route: 048
     Dates: start: 20070920, end: 20080820
  2. RISPERDAL [Suspect]

REACTIONS (6)
  - BLOOD GLUCOSE INCREASED [None]
  - BLOOD PROLACTIN INCREASED [None]
  - CANDIDIASIS [None]
  - MENORRHAGIA [None]
  - VAGINITIS BACTERIAL [None]
  - VULVOVAGINAL MYCOTIC INFECTION [None]
